FAERS Safety Report 6889713-X (Version None)
Quarter: 2010Q3

REPORT INFORMATION
  Report Type: 
  Country: None (occurrence: None)
  Receive Date: 20100730
  Receipt Date: 20080527
  Transmission Date: 20110219
  Serious: No
  Sender: FDA-Public Use
  Company Number: US-PFIZER INC-001-0981-M0107564

PATIENT
  Sex: Female
  Weight: 69.4 kg

DRUGS (4)
  1. LIPITOR [Suspect]
     Indication: BLOOD CHOLESTEROL INCREASED
     Route: 048
  2. CARTIA XT [Concomitant]
     Route: 048
  3. EVISTA [Concomitant]
     Route: 048
  4. DETROL [Concomitant]
     Route: 048

REACTIONS (3)
  - LOCALISED INFECTION [None]
  - LOW DENSITY LIPOPROTEIN INCREASED [None]
  - NIGHTMARE [None]
